FAERS Safety Report 14716262 (Version 3)
Quarter: 2018Q3

REPORT INFORMATION
  Report Type: Spontaneous
  Country: EG (occurrence: EG)
  Receive Date: 20180404
  Receipt Date: 20180703
  Transmission Date: 20181010
  Serious: Yes (Other)
  Sender: FDA-Public Use
  Company Number: EG-PFIZER INC-2018133778

PATIENT
  Age: 55 Year
  Sex: Male

DRUGS (1)
  1. XALKORI [Suspect]
     Active Substance: CRIZOTINIB
     Indication: NON-SMALL CELL LUNG CANCER METASTATIC
     Dosage: 250 MG, 2X/DAY
     Dates: start: 201604

REACTIONS (8)
  - Decreased appetite [Unknown]
  - Hypotension [Unknown]
  - Oedema peripheral [Unknown]
  - Vena cava thrombosis [Unknown]
  - Petit mal epilepsy [Unknown]
  - Transaminases increased [Unknown]
  - Fatigue [Unknown]
  - Bradycardia [Unknown]
